FAERS Safety Report 5177058-8 (Version None)
Quarter: 2006Q4

REPORT INFORMATION
  Report Type: 
  Country: None (occurrence: None)
  Receive Date: 20061218
  Receipt Date: 20061211
  Transmission Date: 20070319
  Serious: Yes (Hospitalization)
  Sender: FDA-Public Use
  Company Number: FR-GLAXOSMITHKLINE-B0450594A

PATIENT
  Age: 74 Year
  Sex: Female

DRUGS (10)
  1. ARIXTRA [Suspect]
     Indication: ERYSIPELAS
     Dosage: 7.5MG PER DAY
     Route: 058
     Dates: start: 20060101, end: 20060101
  2. PYOSTACINE [Concomitant]
     Indication: ERYSIPELAS
     Dosage: 500MG THREE TIMES PER DAY
     Route: 048
     Dates: start: 20060101
  3. VALSARTAN AND HYDROCHLOROTHIAZIDE [Concomitant]
  4. LERCAN [Concomitant]
  5. ADANCOR [Concomitant]
  6. PHYSIOTENS [Concomitant]
  7. SPIRIVA [Concomitant]
     Indication: CHRONIC OBSTRUCTIVE PULMONARY DISEASE
  8. EFFEXOR [Concomitant]
     Indication: DEPRESSION
  9. DOLIPRANE [Concomitant]
  10. PARIET [Concomitant]

REACTIONS (4)
  - CHEST PAIN [None]
  - EXTRASYSTOLES [None]
  - MALAISE [None]
  - PALPITATIONS [None]
